FAERS Safety Report 9678138 (Version 2)
Quarter: 2013Q4

REPORT INFORMATION
  Report Type: Spontaneous
  Country: FR (occurrence: FR)
  Receive Date: 20131108
  Receipt Date: 20131209
  Transmission Date: 20140711
  Serious: Yes (Other)
  Sender: FDA-Public Use
  Company Number: FR-MERCK-1311FRA002983

PATIENT
  Age: 46 Year
  Sex: Male
  Weight: 74 kg

DRUGS (6)
  1. VICTRELIS [Suspect]
     Indication: HEPATITIS C
     Dosage: 800 MG, TID
     Route: 048
     Dates: start: 20110413, end: 20110615
  2. REBETOL [Suspect]
     Indication: HEPATITIS C
     Dosage: 1000 MG, QD
     Route: 048
     Dates: start: 20110314, end: 20110615
  3. VIRAFERONPEG [Suspect]
     Indication: HEPATITIS C
     Dosage: 0.5 ML, QW
     Route: 058
     Dates: start: 20110314, end: 20110608
  4. DOLIPRANE [Concomitant]
     Indication: INFLUENZA LIKE ILLNESS
     Dosage: UNK, QD
     Route: 048
     Dates: start: 20110314, end: 2011
  5. DOLIPRANE [Concomitant]
     Indication: PAIN
  6. DOLIPRANE [Concomitant]
     Indication: PYREXIA

REACTIONS (6)
  - Depressed mood [Recovered/Resolved]
  - Dyspnoea exertional [Recovering/Resolving]
  - Musculoskeletal stiffness [Recovering/Resolving]
  - Asthenia [Recovering/Resolving]
  - Myalgia [Recovering/Resolving]
  - Irritability [Unknown]
